FAERS Safety Report 26081549 (Version 2)
Quarter: 2025Q4

REPORT INFORMATION
  Report Type: Spontaneous
  Country: GB (occurrence: GB)
  Receive Date: 20251124
  Receipt Date: 20251218
  Transmission Date: 20260117
  Serious: Yes (Other)
  Sender: ROCHE
  Company Number: GB-ROCHE-10000435025

PATIENT
  Age: 22 Year
  Sex: Female

DRUGS (1)
  1. RISDIPLAM [Suspect]
     Active Substance: RISDIPLAM
     Indication: Spinal muscular atrophy
     Route: 048

REACTIONS (6)
  - Joint range of motion decreased [Unknown]
  - Fatigue [Unknown]
  - Spinal disorder [Unknown]
  - Product dose omission issue [Unknown]
  - Headache [Recovering/Resolving]
  - Asthenia [Unknown]
